FAERS Safety Report 12320397 (Version 4)
Quarter: 2017Q1

REPORT INFORMATION
  Report Type: Spontaneous
  Country: FR (occurrence: FR)
  Receive Date: 20160501
  Receipt Date: 20170220
  Transmission Date: 20170428
  Serious: Yes (Other)
  Sender: FDA-Public Use
  Company Number: FR-009507513-1604FRA016268

PATIENT
  Age: 30 Year
  Sex: Female

DRUGS (1)
  1. NEXPLANON [Suspect]
     Active Substance: ETONOGESTREL
     Dosage: ONE IMPLANT, UNK (INSERTED IN THE LEFT ARM)
     Route: 059
     Dates: start: 20130607

REACTIONS (11)
  - Weight increased [Unknown]
  - Device dislocation [Not Recovered/Not Resolved]
  - Menstruation normal [Not Recovered/Not Resolved]
  - Device difficult to use [Not Recovered/Not Resolved]
  - General anaesthesia [Unknown]
  - Implant site scar [Not Recovered/Not Resolved]
  - Incorrect drug administration duration [Unknown]
  - Device difficult to use [Not Recovered/Not Resolved]
  - Complication associated with device [Recovered/Resolved]
  - Surgery [Unknown]
  - Implant site mass [Unknown]

NARRATIVE: CASE EVENT DATE: 201504
